FAERS Safety Report 24671848 (Version 1)
Quarter: 2024Q4

REPORT INFORMATION
  Report Type: Other
  Country: IR (occurrence: IR)
  Receive Date: 20241127
  Receipt Date: 20241127
  Transmission Date: 20250114
  Serious: Yes (Life-Threatening, Hospitalization)
  Sender: B BRAUN
  Company Number: IR-B.Braun Medical Inc.-2166081

PATIENT
  Age: 73 Year
  Sex: Female

DRUGS (5)
  1. MEROPENEM [Suspect]
     Active Substance: MEROPENEM
     Indication: Pyrexia
  2. MEROPENEM [Suspect]
     Active Substance: MEROPENEM
     Indication: Septic shock
  3. VANCOMYCIN [Suspect]
     Active Substance: VANCOMYCIN
  4. TOLTERODINE [Concomitant]
     Active Substance: TOLTERODINE
  5. APIXABAN [Concomitant]
     Active Substance: APIXABAN

REACTIONS (1)
  - Drug ineffective [Unknown]
